FAERS Safety Report 25625577 (Version 5)
Quarter: 2025Q3

REPORT INFORMATION
  Report Type: Report from Study
  Country: EU (occurrence: EU)
  Receive Date: 20250731
  Receipt Date: 20250926
  Transmission Date: 20251020
  Serious: Yes (Death, Life-Threatening, Hospitalization, Other)
  Sender: JOHNSON AND JOHNSON
  Company Number: EU-JNJFOC-20250714838

PATIENT
  Age: 58 Year
  Sex: Male
  Weight: 63.2 kg

DRUGS (7)
  1. CILTACABTAGENE AUTOLEUCEL [Suspect]
     Active Substance: CILTACABTAGENE AUTOLEUCEL
     Indication: Plasma cell myeloma
     Route: 042
     Dates: start: 20250610, end: 20250610
  2. DIMETHINDENE MALEATE [Concomitant]
     Active Substance: DIMETHINDENE MALEATE
     Indication: Premedication
     Route: 042
     Dates: start: 20250610, end: 20250610
  3. ACETAMINOPHEN [Concomitant]
     Active Substance: ACETAMINOPHEN
     Indication: Premedication
     Route: 042
     Dates: start: 20250610, end: 20250610
  4. ACETAMINOPHEN [Concomitant]
     Active Substance: ACETAMINOPHEN
     Route: 042
     Dates: start: 20250726, end: 20250728
  5. GRANISETRON [Concomitant]
     Active Substance: GRANISETRON
     Indication: Premedication
     Route: 042
     Dates: start: 20250105, end: 20250107
  6. PANTOPRAZOLE [Concomitant]
     Active Substance: PANTOPRAZOLE
     Indication: Prophylaxis
     Route: 042
     Dates: start: 20250726, end: 20250728
  7. POTASSIUM [Concomitant]
     Active Substance: POTASSIUM
     Indication: Electrolyte imbalance
     Route: 042
     Dates: start: 20250727

REACTIONS (11)
  - Bacterial sepsis [Fatal]
  - Acute kidney injury [Not Recovered/Not Resolved]
  - Respiratory failure [Not Recovered/Not Resolved]
  - Syncope [Recovered/Resolved]
  - Immune effector cell-associated neurotoxicity syndrome [Recovering/Resolving]
  - Immune effector cell-associated haematotoxicity [Not Recovered/Not Resolved]
  - Thrombocytopenia [Recovering/Resolving]
  - Headache [Not Recovered/Not Resolved]
  - Pyrexia [Recovered/Resolved]
  - Hypertension [Recovered/Resolved]
  - Haematuria [Recovered/Resolved]

NARRATIVE: CASE EVENT DATE: 20250613
